FAERS Safety Report 26199568 (Version 1)
Quarter: 2025Q4

REPORT INFORMATION
  Report Type: Spontaneous
  Country: US (occurrence: US)
  Receive Date: 20251225
  Receipt Date: 20251225
  Transmission Date: 20260117
  Serious: No
  Sender: AMGEN
  Company Number: US-AMGEN-USASP2025248098

PATIENT
  Age: 62 Year
  Sex: Female

DRUGS (2)
  1. AIMOVIG [Suspect]
     Active Substance: ERENUMAB-AOOE
     Indication: Occipital neuralgia
     Dosage: 140 MILLIGRAM, QMO
     Route: 065
     Dates: start: 202508
  2. AIMOVIG [Suspect]
     Active Substance: ERENUMAB-AOOE
     Indication: Migraine

REACTIONS (2)
  - Wrong technique in product usage process [Unknown]
  - Migraine [Unknown]

NARRATIVE: CASE EVENT DATE: 20251201
